FAERS Safety Report 22160795 (Version 1)
Quarter: 2023Q1

REPORT INFORMATION
  Report Type: Spontaneous
  Country: IN (occurrence: IN)
  Receive Date: 20230331
  Receipt Date: 20230331
  Transmission Date: 20230417
  Serious: Yes (Other)
  Sender: FDA-Public Use
  Company Number: IN-SUN PHARMACEUTICAL INDUSTRIES LTD-2023R1-383402

PATIENT
  Sex: Female
  Weight: 1.54 kg

DRUGS (2)
  1. SILDENAFIL [Suspect]
     Active Substance: SILDENAFIL
     Indication: Maternal therapy to enhance foetal lung maturity
     Dosage: UNK UNK, BID
     Route: 064
  2. FUROSEMIDE [Suspect]
     Active Substance: FUROSEMIDE
     Indication: Maternal therapy to enhance foetal lung maturity
     Dosage: UNK UNK, QD
     Route: 064

REACTIONS (3)
  - Foetal exposure during pregnancy [Unknown]
  - Premature baby [Unknown]
  - Low birth weight baby [Unknown]
